FAERS Safety Report 5277717-2 (Version None)
Quarter: 2007Q1

REPORT INFORMATION
  Report Type: 
  Country: None (occurrence: None)
  Receive Date: 20070321
  Receipt Date: 20070313
  Transmission Date: 20070707
  Serious: Yes (Other)
  Sender: FDA-Public Use
  Company Number: 153941USA

PATIENT
  Sex: Male

DRUGS (1)
  1. BLEOMYCIN  SULFATE 15 UNITS/10 ML AND 30 UNITS/20ML (BLEOMYCIN ) [Suspect]
     Dates: start: 20070301

REACTIONS (2)
  - NEUTROPHIL COUNT DECREASED [None]
  - WHITE BLOOD CELL COUNT DECREASED [None]
